FAERS Safety Report 12364482 (Version 1)
Quarter: 2016Q2

REPORT INFORMATION
  Report Type: Spontaneous
  Country: US (occurrence: US)
  Receive Date: 20160512
  Receipt Date: 20160512
  Transmission Date: 20160815
  Serious: No
  Sender: FDA-Public Use
  Company Number: US-ACTELION-A-NJ2016-135902

PATIENT
  Age: 53 Year
  Sex: Female

DRUGS (5)
  1. VENTAVIS [Suspect]
     Active Substance: ILOPROST
     Indication: PULMONARY ARTERIAL HYPERTENSION
     Dosage: 5 MCG, 6-9/DAY
     Route: 055
  2. SIMVASTATIN. [Concomitant]
     Active Substance: SIMVASTATIN
  3. TRACLEER [Suspect]
     Active Substance: BOSENTAN
     Indication: PULMONARY ARTERIAL HYPERTENSION
     Dosage: 125 MG, BID
     Route: 048
     Dates: start: 20151224
  4. CARVEDILOL. [Concomitant]
     Active Substance: CARVEDILOL
  5. ADCIRCA [Suspect]
     Active Substance: TADALAFIL
     Indication: PRODUCT USED FOR UNKNOWN INDICATION
     Dosage: UNK
     Route: 065
     Dates: start: 20160502

REACTIONS (1)
  - Vomiting [Unknown]

NARRATIVE: CASE EVENT DATE: 20160502
